FAERS Safety Report 8791131 (Version 1)
Quarter: 2012Q4

REPORT INFORMATION
  Report Type: Spontaneous
  Country: US (occurrence: None)
  Receive Date: 20120913
  Receipt Date: 20120913
  Transmission Date: 20130627
  Serious: No
  Sender: FDA-Public Use
  Company Number: None

PATIENT

DRUGS (2)
  1. BAYER ADVANCED ASPIRIN REGULAR STRENGTH [Suspect]
     Indication: HEADACHE
     Dates: start: 201207, end: 201208
  2. BAYER ADVANCED ASPIRIN REGULAR STRENGTH [Suspect]

REACTIONS (2)
  - Oral discomfort [None]
  - Throat irritation [None]
